FAERS Safety Report 14374278 (Version 1)
Quarter: 2018Q1

REPORT INFORMATION
  Report Type: Spontaneous
  Country: JP (occurrence: JP)
  Receive Date: 20180111
  Receipt Date: 20180111
  Transmission Date: 20180509
  Serious: Yes (Life-Threatening, Hospitalization, Other)
  Sender: FDA-Public Use
  Company Number: JP-VISTAPHARM, INC.-VER201801-000026

PATIENT
  Age: 59 Year
  Sex: Male
  Weight: 90 kg

DRUGS (2)
  1. PREDNISOLONE. [Suspect]
     Active Substance: PREDNISOLONE
     Indication: PRODUCT USED FOR UNKNOWN INDICATION
     Route: 048
  2. METHYLPREDNISOLONE. [Suspect]
     Active Substance: METHYLPREDNISOLONE
     Indication: PRODUCT USED FOR UNKNOWN INDICATION
     Dosage: 1 G/DAY FOR 3 DAYS HIGH-DOSE (ON HOSPITAL DAY 21)

REACTIONS (3)
  - Infection [Recovered/Resolved]
  - Duodenal ulcer haemorrhage [Recovered/Resolved]
  - Shock haemorrhagic [Recovered/Resolved]
